FAERS Safety Report 25278562 (Version 1)
Quarter: 2025Q2

REPORT INFORMATION
  Report Type: Spontaneous
  Country: CN (occurrence: CN)
  Receive Date: 20250507
  Receipt Date: 20250507
  Transmission Date: 20250717
  Serious: Yes (Disabling)
  Sender: PFIZER
  Company Number: CN-TAKEDA-2025TUS041948

PATIENT
  Age: 31 Year
  Sex: Male
  Weight: 116 kg

DRUGS (1)
  1. ADCETRIS [Suspect]
     Active Substance: BRENTUXIMAB VEDOTIN
     Indication: Hodgkin^s disease
     Dosage: 180 MILLIGRAM, 1/WEEK
     Route: 041
     Dates: start: 20250426, end: 20250426

REACTIONS (4)
  - Oxygen saturation decreased [Recovering/Resolving]
  - Pruritus [Recovering/Resolving]
  - Throat irritation [Recovering/Resolving]
  - Oropharyngeal discomfort [Recovering/Resolving]
